FAERS Safety Report 25834327 (Version 1)
Quarter: 2025Q3

REPORT INFORMATION
  Report Type: Spontaneous
  Country: US (occurrence: US)
  Receive Date: 20250923
  Receipt Date: 20250923
  Transmission Date: 20251020
  Serious: Yes (Life-Threatening, Hospitalization, Other)
  Sender: STRIDES
  Company Number: US-STRIDES ARCOLAB LIMITED-2025SP011744

PATIENT
  Age: 69 Year
  Sex: Male

DRUGS (3)
  1. DOXYCYCLINE [Interacting]
     Active Substance: DOXYCYCLINE
     Indication: Pneumonia
     Route: 065
  2. WARFARIN [Interacting]
     Active Substance: WARFARIN
     Indication: Atrial fibrillation
     Route: 065
  3. WARFARIN [Interacting]
     Active Substance: WARFARIN
     Route: 065

REACTIONS (4)
  - Abdominal wall haematoma [Recovered/Resolved]
  - Anticoagulation drug level above therapeutic [Recovered/Resolved]
  - Haemorrhage [Recovered/Resolved]
  - Labelled drug-drug interaction issue [Unknown]
